FAERS Safety Report 7982976-9 (Version None)
Quarter: 2011Q4

REPORT INFORMATION
  Report Type: 
  Country: None (occurrence: None)
  Receive Date: 20111215
  Receipt Date: 20111207
  Transmission Date: 20120403
  Serious: No
  Sender: FDA-Public Use
  Company Number: US-B.I. PHARMACEUTICALS,INC./RIDGEFIELD-2011-BP-27878BP

PATIENT
  Age: 60 Year
  Sex: Female

DRUGS (1)
  1. CLONIDINE HCL [Suspect]

REACTIONS (2)
  - FATIGUE [None]
  - BLOOD PRESSURE DECREASED [None]
